FAERS Safety Report 4529408-0 (Version None)
Quarter: 2004Q4

REPORT INFORMATION
  Report Type: 
  Country: None (occurrence: None)
  Receive Date: 20041215
  Receipt Date: 20041215
  Transmission Date: 20050328
  Serious: No
  Sender: FDA-Public Use
  Company Number: None

PATIENT
  Sex: Female

DRUGS (2)
  1. CITALOPRAM [Suspect]
     Indication: MAJOR DEPRESSION
     Dosage: 40 MG 1 1/2 QD
  2. CITALOPRAM [Suspect]
     Indication: POST-TRAUMATIC STRESS DISORDER
     Dosage: 40 MG 1 1/2 QD

REACTIONS (4)
  - ANHEDONIA [None]
  - CHILD ABUSE [None]
  - FATIGUE [None]
  - PHARMACEUTICAL PRODUCT COMPLAINT [None]
